FAERS Safety Report 7611511-X (Version None)
Quarter: 2011Q3

REPORT INFORMATION
  Report Type: 
  Country: None (occurrence: None)
  Receive Date: 20110715
  Receipt Date: 20110712
  Transmission Date: 20111222
  Serious: Yes (Other)
  Sender: FDA-Public Use
  Company Number: JP-PFIZER INC-2011148499

PATIENT
  Age: 64 Year
  Sex: Male
  Weight: 60 kg

DRUGS (10)
  1. LENDORMIN [Concomitant]
     Dosage: 0.25 MG X1 TABLET
  2. DEPAS [Concomitant]
     Dosage: 0.5 MG X1 TABLET
  3. FOSRENOL [Concomitant]
     Dosage: 250 MG X3 TABLETS DAILY
  4. ASPIRIN [Concomitant]
     Dosage: 100 MG X1 TABLET
  5. LYRICA [Suspect]
     Dosage: 25 MG, 1X/DAY
     Route: 048
     Dates: start: 20110522, end: 20110522
  6. MEXITIL [Concomitant]
     Dosage: 100 MG X2 CAPSULES
  7. LYRICA [Suspect]
     Indication: BACK PAIN
     Dosage: 25 MG, 1X/DAY
     Route: 048
     Dates: start: 20110420, end: 20110420
  8. ALLOPURINOL [Concomitant]
     Dosage: 100 MG X1 TABLET
  9. RANITIDINE HYDROCHLORIDE [Concomitant]
     Dosage: 150 MG X1 TABLET
  10. PLETAL [Concomitant]
     Dosage: 100 MG X 2 TABLETS

REACTIONS (3)
  - DYSSTASIA [None]
  - MUSCULAR WEAKNESS [None]
  - DIZZINESS [None]
